FAERS Safety Report 10836514 (Version 1)
Quarter: 2015Q1

REPORT INFORMATION
  Report Type: Spontaneous
  Country: US (occurrence: US)
  Receive Date: 20150219
  Receipt Date: 20150219
  Transmission Date: 20150721
  Serious: Yes (Hospitalization)
  Sender: FDA-Public Use
  Company Number: US-CELGENEUS-163-21880-14020693

PATIENT
  Age: 96 Year
  Sex: Female

DRUGS (1)
  1. REVLIMID [Suspect]
     Active Substance: LENALIDOMIDE
     Indication: PLASMA CELL MYELOMA
     Dosage: 5 MILLIGRAM
     Route: 048
     Dates: start: 20110228

REACTIONS (4)
  - Hip fracture [Recovered/Resolved]
  - Fall [Recovered/Resolved]
  - Dizziness [Recovered/Resolved]
  - Fall [Unknown]

NARRATIVE: CASE EVENT DATE: 2013
